FAERS Safety Report 5510149-8 (Version None)
Quarter: 2007Q4

REPORT INFORMATION
  Report Type: 
  Country: None (occurrence: None)
  Receive Date: 20071108
  Receipt Date: 20071105
  Transmission Date: 20080405
  Serious: Yes (Other)
  Sender: FDA-Public Use
  Company Number: IT-BRISTOL-MYERS SQUIBB COMPANY-13969738

PATIENT

DRUGS (3)
  1. TRIAMCINOLONE [Suspect]
     Indication: DIABETIC RETINAL OEDEMA
  2. TRIAMCINOLONE [Suspect]
     Indication: MACULAR DEGENERATION
  3. TRIAMCINOLONE [Suspect]
     Indication: MACULAR OEDEMA

REACTIONS (1)
  - EYELID PTOSIS [None]
